FAERS Safety Report 14871877 (Version 1)
Quarter: 2018Q2

REPORT INFORMATION
  Report Type: Spontaneous
  Country: US (occurrence: GB)
  Receive Date: 20180509
  Receipt Date: 20180509
  Transmission Date: 20180711
  Serious: Yes (Death, Other)
  Sender: FDA-Public Use
  Company Number: US-SUNOVION-2018SUN001878

PATIENT

DRUGS (4)
  1. GLYCOPYRROLATE. [Suspect]
     Active Substance: GLYCOPYRROLATE
     Indication: INCREASED BRONCHIAL SECRETION
     Dosage: UNK
     Route: 051
     Dates: start: 20130518, end: 20130518
  2. FLUDROCORTISONE [Concomitant]
     Active Substance: FLUDROCORTISONE
  3. DIGOXIN. [Concomitant]
     Active Substance: DIGOXIN
  4. MIDAZOLAM [Concomitant]
     Active Substance: MIDAZOLAM HYDROCHLORIDE

REACTIONS (4)
  - Loss of consciousness [Not Recovered/Not Resolved]
  - Feeling hot [Not Recovered/Not Resolved]
  - Death [Fatal]
  - Contraindication to medical treatment [Unknown]

NARRATIVE: CASE EVENT DATE: 20130518
